FAERS Safety Report 11688834 (Version 1)
Quarter: 2015Q4

REPORT INFORMATION
  Report Type: Not Available
  Country: RO (occurrence: RO)
  Receive Date: 20151102
  Receipt Date: 20151102
  Transmission Date: 20160304
  Serious: Yes (Hospitalization)
  Sender: FDA-Public Use
  Company Number: RO-ANIPHARMA-2015-RO-000001

PATIENT
  Age: 33 Year
  Sex: Female

DRUGS (2)
  1. FLUVOXAMINE (NON-SPECIFIC) [Suspect]
     Active Substance: FLUVOXAMINE
     Dosage: 50 MG/DAILY
  2. BUDESONIDE. [Suspect]
     Active Substance: BUDESONIDE
     Dosage: 6 MG PER DAY
     Route: 048

REACTIONS (2)
  - Cushing^s syndrome [Unknown]
  - Drug interaction [Unknown]
